FAERS Safety Report 4304648-4 (Version None)
Quarter: 2004Q1

REPORT INFORMATION
  Report Type: 
  Country: None (occurrence: None)
  Receive Date: 20040226
  Receipt Date: 20031107
  Transmission Date: 20041129
  Serious: Yes (Other)
  Sender: FDA-Public Use
  Company Number: US-GLAXOSMITHKLINE-A0438808A

PATIENT

DRUGS (2)
  1. WELLBUTRIN [Suspect]
     Route: 048
  2. WELLBUTRIN [Suspect]
     Dates: start: 20030101

REACTIONS (1)
  - GRAND MAL CONVULSION [None]
